FAERS Safety Report 8168789-6 (Version None)
Quarter: 2012Q1

REPORT INFORMATION
  Report Type: 
  Country: None (occurrence: None)
  Receive Date: 20120227
  Receipt Date: 20120220
  Transmission Date: 20120608
  Serious: Yes (Hospitalization)
  Sender: FDA-Public Use
  Company Number: JP-PFIZER INC-2012029617

PATIENT
  Age: 45 Year
  Sex: Female

DRUGS (4)
  1. VOLTAREN [Suspect]
     Dosage: UNK
     Route: 061
  2. NEUROTROPIN [Concomitant]
     Indication: SPINAL OSTEOARTHRITIS
     Dosage: UNK
  3. LYRICA [Suspect]
     Indication: SPINAL OSTEOARTHRITIS
     Dosage: 75 MG, DAILY
     Route: 048
  4. VOLTAREN [Suspect]
     Indication: SPINAL OSTEOARTHRITIS
     Dosage: UNK
     Route: 065

REACTIONS (2)
  - RESPIRATORY FAILURE [None]
  - CYANOSIS [None]
